FAERS Safety Report 13831011 (Version 1)
Quarter: 2017Q3

REPORT INFORMATION
  Report Type: Spontaneous
  Country: DE (occurrence: DE)
  Receive Date: 20170803
  Receipt Date: 20170803
  Transmission Date: 20171127
  Serious: Yes (Other)
  Sender: FDA-Public Use
  Company Number: DE-MYLANLABS-2017M1047373

PATIENT

DRUGS (26)
  1. CISPLATIN. [Suspect]
     Active Substance: CISPLATIN
     Indication: OSTEOSARCOMA
     Dosage: 120MG/M2 (INITIALLY FOR 2 CYCLES; POST SURGERY FOR 4 CYCLES)
     Route: 065
  2. DOXORUBICIN [Suspect]
     Active Substance: DOXORUBICIN
     Indication: OSTEOSARCOMA
     Dosage: 75MG/M2 (INITIALLY FOR 2 CYCLES; POST SURGERY FOR 4 CYCLES)
     Route: 065
  3. AMYLASE [Concomitant]
     Active Substance: AMYLASE
     Indication: OSTEOSARCOMA
     Dosage: PANCREATIC AMYLASES
     Route: 065
  4. BIOTIN [Concomitant]
     Active Substance: BIOTIN
     Indication: PRODUCT USED FOR UNKNOWN INDICATION
     Route: 065
  5. METHOTREXATE. [Suspect]
     Active Substance: METHOTREXATE
     Indication: OSTEOSARCOMA
     Dosage: 12G/M2 (INITIALLY FOR 2 CYCLES; POST SURGERY FOR 4 CYCLES)
     Route: 065
  6. SALBUTAMOL [Concomitant]
     Active Substance: ALBUTEROL
     Indication: CYSTIC FIBROSIS
     Route: 055
  7. THIAMINE. [Concomitant]
     Active Substance: THIAMINE
     Indication: PRODUCT USED FOR UNKNOWN INDICATION
     Dosage: VITAMIN B1
     Route: 065
  8. PYRIDOXINE [Concomitant]
     Active Substance: PYRIDOXINE
     Indication: PRODUCT USED FOR UNKNOWN INDICATION
     Dosage: VITAMIN B6
     Route: 065
  9. PIPERACILLIN [Concomitant]
     Active Substance: PIPERACILLIN
     Indication: FEBRILE NEUTROPENIA
     Dosage: 200 MG/KG BODY WEIGHT/DAY, THRICE DAILY
     Route: 065
  10. SODIUM CHLORIDE. [Concomitant]
     Active Substance: SODIUM CHLORIDE
     Indication: CYSTIC FIBROSIS
     Dosage: HYPERTONIC SALINE
     Route: 055
  11. PANTOTHENIC ACID [Concomitant]
     Active Substance: PANTOTHENIC ACID
     Indication: PRODUCT USED FOR UNKNOWN INDICATION
     Route: 065
  12. TAZOBACTAM [Concomitant]
     Active Substance: TAZOBACTAM
     Indication: FEBRILE NEUTROPENIA
     Dosage: 25 MG/KG BODY WEIGHT/DAY, THRICE DAILY
     Route: 065
  13. TEICOPLANIN [Concomitant]
     Active Substance: TEICOPLANIN
     Indication: FEBRILE NEUTROPENIA
     Dosage: ON DAY 1
     Route: 065
  14. ASCORBIC ACID. [Concomitant]
     Active Substance: ASCORBIC ACID
     Indication: PRODUCT USED FOR UNKNOWN INDICATION
     Dosage: VITAMIN C
     Route: 065
  15. VITAMIN E                          /00110501/ [Concomitant]
     Active Substance: TOCOPHEROL
     Indication: PRODUCT USED FOR UNKNOWN INDICATION
     Route: 065
  16. NIACIN. [Concomitant]
     Active Substance: NIACIN
     Indication: PRODUCT USED FOR UNKNOWN INDICATION
     Route: 065
  17. MEROPENEM. [Concomitant]
     Active Substance: MEROPENEM
     Indication: FEBRILE NEUTROPENIA
     Dosage: 60 MG/KG BODY WEIGHT/DAY, THRICE DAILY
     Route: 065
  18. FOLIC ACID. [Concomitant]
     Active Substance: FOLIC ACID
     Indication: PRODUCT USED FOR UNKNOWN INDICATION
     Route: 065
  19. RIBOFLAVIN [Concomitant]
     Active Substance: RIBOFLAVIN
     Indication: PRODUCT USED FOR UNKNOWN INDICATION
     Dosage: VITAMIN B2
     Route: 065
  20. TEICOPLANIN [Concomitant]
     Active Substance: TEICOPLANIN
     Route: 065
  21. RETINOL [Concomitant]
     Active Substance: RETINOL
     Indication: OSTEOSARCOMA
     Dosage: VITAMIN A
     Route: 065
  22. VITAMIN D                          /00107901/ [Concomitant]
     Active Substance: ERGOCALCIFEROL
     Indication: PRODUCT USED FOR UNKNOWN INDICATION
     Route: 065
  23. CEFUROXIME. [Concomitant]
     Active Substance: CEFUROXIME
     Indication: ANTIBIOTIC PROPHYLAXIS
     Dosage: 20MG/KG BODY WEIGHT/DAY, TWICE DAILY
     Route: 065
  24. ACETYLCYSTEINE. [Concomitant]
     Active Substance: ACETYLCYSTEINE
     Indication: CYSTIC FIBROSIS
     Route: 055
  25. IPRATROPIUM BROMIDE. [Concomitant]
     Active Substance: IPRATROPIUM BROMIDE
     Indication: CYSTIC FIBROSIS
     Route: 055
  26. LIPASE [Concomitant]
     Active Substance: LIPASE
     Indication: PRODUCT USED FOR UNKNOWN INDICATION
     Dosage: PANCREATIC LIPASE
     Route: 065

REACTIONS (2)
  - Weight decreased [Recovered/Resolved]
  - Febrile neutropenia [Unknown]
